FAERS Safety Report 7215196-6 (Version None)
Quarter: 2011Q1

REPORT INFORMATION
  Report Type: 
  Country: None (occurrence: None)
  Receive Date: 20110107
  Receipt Date: 20101019
  Transmission Date: 20110831
  Serious: No
  Sender: FDA-Public Use
  Company Number: A0887608A

PATIENT
  Age: 61 Year
  Sex: Female

DRUGS (4)
  1. BENICAR [Suspect]
     Route: 065
  2. LOVAZA [Suspect]
     Indication: AUTOIMMUNE DISORDER
     Dosage: 4CAP PER DAY
     Route: 048
     Dates: start: 20101014
  3. SIMVASTATIN [Suspect]
     Route: 065
  4. DILTIAZEM [Concomitant]

REACTIONS (2)
  - RASH [None]
  - RASH PRURITIC [None]
